FAERS Safety Report 9296928 (Version 3)
Quarter: 2013Q4

REPORT INFORMATION
  Report Type: Report from Study
  Country: DE (occurrence: DE)
  Receive Date: 20130518
  Receipt Date: 20131022
  Transmission Date: 20140711
  Serious: Yes (Hospitalization)
  Sender: FDA-Public Use
  Company Number: DE-ROCHE-1196001

PATIENT
  Age: 73 Year
  Sex: Female
  Weight: 65 kg

DRUGS (5)
  1. BEVACIZUMAB [Suspect]
     Indication: OVARIAN CANCER
     Dosage: DATE OF LAST DOSE ADMINISTRATION BEFORE SAE:29/APR/2013
     Route: 042
     Dates: start: 20130312
  2. CARBOPLATIN [Suspect]
     Indication: OVARIAN CANCER
     Dosage: DATE OF LAST DOSE PRIOR TO EVENT:29/APR/2013
     Route: 042
     Dates: start: 20130205
  3. CARBOPLATIN [Suspect]
     Dosage: DOSE REDUED
     Route: 042
  4. PACLITAXEL [Suspect]
     Indication: OVARIAN CANCER
     Route: 042
     Dates: start: 20130205
  5. PACLITAXEL [Suspect]
     Dosage: DOSE REDUCED
     Route: 042

REACTIONS (1)
  - General physical health deterioration [Recovered/Resolved]
